FAERS Safety Report 10220027 (Version 1)
Quarter: 2014Q1

REPORT INFORMATION
  Report Type: Spontaneous
  Country: US (occurrence: None)
  Receive Date: 20140306
  Receipt Date: 20140306
  Transmission Date: 20141002
  Serious: Yes (Other)
  Sender: FDA-Public Use
  Company Number: 163-21880-13032513

PATIENT
  Age: 65 Year
  Sex: Female
  Weight: 81.65 kg

DRUGS (12)
  1. REVLIMID (LENALIDOMIDE) (5 MILLIGRAM, CAPSULES) [Suspect]
     Indication: PLASMA CELL MYELOMA
     Route: 048
     Dates: start: 201211, end: 2012
  2. LOVENOX (HEPARIN-FRACTION, SODIUM SALT) (UNKNOWN) [Concomitant]
  3. ACYCLOVIR (ACICLOVIR) (CAPSULES) [Concomitant]
  4. GARLIC (GARLIC) (CAPSULES) [Concomitant]
  5. GLUCOSAMINE/CHONDROITIN (JORIX) (UNKNOWN) [Concomitant]
  6. LABETALOL HCL (LABETALOL HYDROCHLORIDE) (UNKNOWN) [Concomitant]
  7. MULTIVITAMINS (MULTIVITAMINS) (CAPSULES) [Concomitant]
  8. VELCADE (BORTEZOMIB) (UNKNOWN) [Concomitant]
  9. VITAMIN D (ERGOCALCIFEROL) (UNKNOWN) [Concomitant]
  10. VITAMIN B-50 COMPLEX (B-KOMPLEX ^LECIVA^) (UNKNOWN). [Concomitant]
  11. IMODIUM ADVANCED (IMODIUM ADVANCED) (UNKNOWN) [Concomitant]
  12. BABY ASPIRIN (ACETYLSALICYLIC ACID) (UNKNOWN) [Concomitant]

REACTIONS (4)
  - Diarrhoea [None]
  - Fatigue [None]
  - Constipation [None]
  - Flatulence [None]
